FAERS Safety Report 17788954 (Version 1)
Quarter: 2020Q2

REPORT INFORMATION
  Report Type: Spontaneous
  Country: DE (occurrence: DE)
  Receive Date: 20200514
  Receipt Date: 20200514
  Transmission Date: 20200714
  Serious: Yes (Other)
  Sender: FDA-Public Use
  Company Number: DE-PFIZER INC-2020189762

PATIENT
  Age: 60 Year
  Sex: Female
  Weight: 60 kg

DRUGS (4)
  1. BISOPROL [Concomitant]
     Active Substance: BISOPROLOL FUMARATE
     Dosage: 1 DF, DAILY
     Dates: start: 20160511
  2. ATORVASTATIN CALCIUM. [Suspect]
     Active Substance: ATORVASTATIN CALCIUM
     Dosage: 1 DF, DAILY
     Dates: start: 20160511
  3. RAMIPRIL 1A PHARMA [Concomitant]
     Active Substance: RAMIPRIL
     Dosage: 1 DF, DAILY
     Dates: start: 20160511
  4. ASPIRIN. [Concomitant]
     Active Substance: ASPIRIN
     Dosage: 1 DF, DAILY
     Dates: start: 20160511

REACTIONS (7)
  - Osteoporosis [Unknown]
  - Back pain [Unknown]
  - Myalgia [Unknown]
  - Bone pain [Unknown]
  - Tinnitus [Unknown]
  - Spinal fracture [Unknown]
  - Malaise [Unknown]

NARRATIVE: CASE EVENT DATE: 20160511
